FAERS Safety Report 5747249-3 (Version None)
Quarter: 2008Q2

REPORT INFORMATION
  Report Type: 
  Country: None (occurrence: None)
  Receive Date: 20080520
  Receipt Date: 20080507
  Transmission Date: 20081010
  Serious: Yes (Hospitalization)
  Sender: FDA-Public Use
  Company Number: 000915

PATIENT
  Sex: Male

DRUGS (1)
  1. PLETAL [Suspect]
     Dosage: 100 MG, ORAL
     Route: 048
     Dates: end: 20080401

REACTIONS (1)
  - CARDIAC FAILURE ACUTE [None]
